FAERS Safety Report 24209814 (Version 2)
Quarter: 2024Q3

REPORT INFORMATION
  Report Type: Spontaneous
  Country: CN (occurrence: CN)
  Receive Date: 20240814
  Receipt Date: 20240821
  Transmission Date: 20241017
  Serious: Yes (Life-Threatening)
  Sender: PFIZER
  Company Number: CN-MLMSERVICE-20240801-PI150679-00128-1

PATIENT
  Age: 73 Year
  Sex: Male

DRUGS (4)
  1. DOXORUBICIN HYDROCHLORIDE [Suspect]
     Active Substance: DOXORUBICIN HYDROCHLORIDE
     Indication: Hodgkin^s disease
     Dosage: FREQ:28 D;25 MG/M2, ON THE 1ST AND 15TH DAY EACH CYCLE IS 28 DAYS (ABVD REGIMEN)
     Dates: start: 201301
  2. BLEOMYCIN [Suspect]
     Active Substance: BLEOMYCIN SULFATE
     Indication: Hodgkin^s disease
     Dosage: FREQ:28 D;10 MG/M2, ON THE 1ST AND 15TH DAY EACH CYCLE IS 28 DAYS (ABVD REGIMEN)
     Dates: start: 201301
  3. DACARBAZINE [Suspect]
     Active Substance: DACARBAZINE
     Indication: Hodgkin^s disease
     Dosage: FREQ:28 D;375 MG/M2, ON THE 1ST AND 15TH DAY EACH CYCLE IS 28 DAYS (ABVD REGIMEN)
     Dates: start: 201301
  4. VINCRISTINE [Suspect]
     Active Substance: VINCRISTINE
     Indication: Hodgkin^s disease
     Dosage: FREQ:28 D;VINCRISTINE 6 MG/M2, ON THE 1ST AND 15TH DAY EACH CYCLE IS 28 DAYS (ABVD REGIMEN)
     Dates: start: 201301

REACTIONS (2)
  - Second primary malignancy [Recovered/Resolved]
  - Peripheral T-cell lymphoma unspecified [Recovered/Resolved]

NARRATIVE: CASE EVENT DATE: 20150101
